FAERS Safety Report 16898197 (Version 1)
Quarter: 2019Q4

REPORT INFORMATION
  Report Type: Spontaneous
  Country: US (occurrence: US)
  Receive Date: 20191009
  Receipt Date: 20191009
  Transmission Date: 20200122
  Serious: No
  Sender: FDA-Public Use
  Company Number: US-BAYER-2019-181437

PATIENT
  Age: 66 Year
  Sex: Female

DRUGS (2)
  1. GADAVIST [Suspect]
     Active Substance: GADOBUTROL
     Indication: CHOLELITHIASIS
  2. GADAVIST [Suspect]
     Active Substance: GADOBUTROL
     Indication: ABDOMEN SCAN
     Dosage: 8.5 ML, ONCE
     Dates: start: 20191003, end: 20191003

REACTIONS (3)
  - Erythema [Recovered/Resolved]
  - Pruritus [Recovered/Resolved]
  - Urticaria [Recovered/Resolved]

NARRATIVE: CASE EVENT DATE: 20191003
